FAERS Safety Report 4617936-9 (Version None)
Quarter: 2005Q1

REPORT INFORMATION
  Report Type: 
  Country: None (occurrence: None)
  Receive Date: 20050322
  Receipt Date: 20050308
  Transmission Date: 20050727
  Serious: Yes (Death)
  Sender: FDA-Public Use
  Company Number: 2005BI005309

PATIENT
  Age: 27 Year
  Sex: Male
  Weight: 60 kg

DRUGS (2)
  1. NATALIZUMAB (NATALIZUMAB) [Suspect]
     Indication: MULTIPLE SCLEROSIS
     Dosage: 300 MG; QM; IV
     Route: 042
     Dates: start: 20040930, end: 20040930
  2. VENTOLIN HFA [Concomitant]

REACTIONS (4)
  - COMPLETED SUICIDE [None]
  - EXSANGUINATION [None]
  - GUN SHOT WOUND [None]
  - MOOD SWINGS [None]
